FAERS Safety Report 12583756 (Version 1)
Quarter: 2016Q3

REPORT INFORMATION
  Report Type: Report from Study
  Country: RO (occurrence: RO)
  Receive Date: 20160722
  Receipt Date: 20160722
  Transmission Date: 20161109
  Serious: Yes (Hospitalization)
  Sender: FDA-Public Use
  Company Number: RO-KADMON PHARMACEUTICALS, LLC-KAD201607-002679

PATIENT
  Age: 78 Year
  Sex: Female

DRUGS (6)
  1. EXVIERA [Suspect]
     Active Substance: DASABUVIR
     Indication: HEPATIC CIRRHOSIS
  2. VIEKIRAX [Suspect]
     Active Substance: OMBITASVIR\PARITAPREVIR\RITONAVIR
     Indication: HEPATITIS C
     Dosage: TABLET
     Route: 048
     Dates: start: 20160615, end: 20160711
  3. RIBAVIRIN. [Suspect]
     Active Substance: RIBAVIRIN
     Indication: HEPATIC CIRRHOSIS
  4. VIEKIRAX [Suspect]
     Active Substance: OMBITASVIR\PARITAPREVIR\RITONAVIR
     Indication: HEPATIC CIRRHOSIS
  5. EXVIERA [Suspect]
     Active Substance: DASABUVIR
     Indication: HEPATITIS C
     Dosage: TABLET
     Route: 048
     Dates: start: 20160615, end: 20160711
  6. RIBAVIRIN. [Suspect]
     Active Substance: RIBAVIRIN
     Indication: HEPATITIS C
     Dosage: TABLET
     Route: 048
     Dates: start: 20160615, end: 20160711

REACTIONS (19)
  - Rash papular [Recovered/Resolved]
  - Vomiting [Unknown]
  - Tremor [Unknown]
  - Malaise [Unknown]
  - Abdominal pain [Unknown]
  - Bradycardia [Recovered/Resolved]
  - Blood sodium decreased [Unknown]
  - Renal failure [Unknown]
  - Hyponatraemia [Unknown]
  - Fatigue [Unknown]
  - Atrioventricular block [Recovered/Resolved]
  - Dyspnoea [Unknown]
  - Asthenia [Recovered/Resolved]
  - Dizziness [Recovered/Resolved]
  - Blood potassium decreased [Unknown]
  - Abdominal pain upper [Unknown]
  - Anaemia [Unknown]
  - Blood urea increased [Unknown]
  - Hyperbilirubinaemia [Unknown]

NARRATIVE: CASE EVENT DATE: 20160615
